FAERS Safety Report 12450460 (Version 7)
Quarter: 2017Q4

REPORT INFORMATION
  Report Type: Report from Study
  Country: IL (occurrence: IL)
  Receive Date: 20160609
  Receipt Date: 20171228
  Transmission Date: 20180320
  Serious: Yes (Death, Hospitalization)
  Sender: FDA-Public Use
  Company Number: IL-ASTELLAS-2016US017106

PATIENT
  Age: 72 Year
  Sex: Male

DRUGS (10)
  1. CONCOR [Concomitant]
     Active Substance: BISOPROLOL FUMARATE
     Indication: HYPERTENSION
     Dosage: 0.25 MG, ONCE DAILY
     Route: 048
     Dates: start: 201111, end: 20160511
  2. ENALADEX [Concomitant]
     Active Substance: ENALAPRIL MALEATE
     Indication: HYPERTENSION
     Route: 048
     Dates: start: 201111, end: 20160511
  3. LUCRIN [Concomitant]
     Active Substance: LEUPROLIDE ACETATE
     Indication: PROSTATE CANCER
     Dosage: 11.25 MG, 1 IN 2 MONTHS
     Route: 065
     Dates: start: 200912, end: 20160511
  4. XOFIGO [Concomitant]
     Active Substance: RADIUM RA-223 DICHLORIDE
     Indication: PRODUCT USED FOR UNKNOWN INDICATION
     Dosage: UNK UNK, UNKNOWN FREQ.
     Route: 065
     Dates: start: 20160120, end: 20160413
  5. PLACEBO [Suspect]
     Active Substance: UNSPECIFIED INGREDIENT
     Indication: PROSTATE CANCER
     Dosage: UNK UNK, UNKNOWN FREQ.
     Route: 065
     Dates: start: 20111201, end: 20120701
  6. ENZALUTAMIDE [Suspect]
     Active Substance: ENZALUTAMIDE
     Indication: PROSTATE CANCER
     Dosage: UNK UNK, ONCE DAILY
     Route: 048
     Dates: start: 20140918, end: 20160503
  7. CARDILOC [Concomitant]
     Active Substance: BISOPROLOL FUMARATE
     Indication: PRODUCT USED FOR UNKNOWN INDICATION
     Route: 048
     Dates: start: 2013
  8. RECLAST [Concomitant]
     Active Substance: ZOLEDRONIC ACID
     Indication: METASTASES TO BONE
     Dosage: 4 MG, 1 IN 3 MONTHS
     Route: 058
     Dates: start: 20111001, end: 20160511
  9. OMNIC [Concomitant]
     Active Substance: TAMSULOSIN HYDROCHLORIDE
     Indication: BENIGN PROSTATIC HYPERPLASIA
     Dosage: 0.4 MG, ONCE DAILY
     Route: 048
     Dates: start: 201205, end: 20160511
  10. ASPIRIN. [Concomitant]
     Active Substance: ASPIRIN
     Indication: HYPERTENSION
     Route: 048
     Dates: start: 201111, end: 20160511

REACTIONS (2)
  - Subdural haematoma [Fatal]
  - Monoplegia [Fatal]

NARRATIVE: CASE EVENT DATE: 20160424
